FAERS Safety Report 12966105 (Version 1)
Quarter: 2016Q4

REPORT INFORMATION
  Report Type: Spontaneous
  Country: US (occurrence: US)
  Receive Date: 20161120
  Receipt Date: 20161120
  Transmission Date: 20170207
  Serious: Yes (Other)
  Sender: FDA-Public Use
  Company Number: None

PATIENT
  Age: 80 Year
  Sex: Male
  Weight: 79.65 kg

DRUGS (10)
  1. LATANOPROST. [Concomitant]
     Active Substance: LATANOPROST
  2. RED RICE YEAST [Concomitant]
     Active Substance: DIETARY SUPPLEMENT
  3. OSTEO-BIFLEX [Concomitant]
  4. ASPIRIN. [Concomitant]
     Active Substance: ASPIRIN
  5. FEXOFENADINE [Concomitant]
     Active Substance: FEXOFENADINE\FEXOFENADINE HYDROCHLORIDE
  6. BROMONIDINE 0.2% [Suspect]
     Active Substance: BRIMONIDINE TARTRATE
     Indication: GLAUCOMA
     Dosage: ?          QUANTITY:1 DROP(S);?
     Route: 047
     Dates: start: 20161111, end: 20161112
  7. FISH OIL [Concomitant]
     Active Substance: FISH OIL
  8. PREVACID [Concomitant]
     Active Substance: LANSOPRAZOLE
  9. LISINOPRIL. [Concomitant]
     Active Substance: LISINOPRIL
  10. VITAMIN [Concomitant]
     Active Substance: VITAMINS

REACTIONS (3)
  - Blood pressure decreased [None]
  - Asthenia [None]
  - Somnolence [None]

NARRATIVE: CASE EVENT DATE: 20161111
